FAERS Safety Report 7209472-0 (Version None)
Quarter: 2010Q4

REPORT INFORMATION
  Report Type: 
  Country: None (occurrence: None)
  Receive Date: 20101223
  Receipt Date: 20101213
  Transmission Date: 20110411
  Serious: Yes (Death, Hospitalization)
  Sender: FDA-Public Use
  Company Number: 2010AL000106

PATIENT
  Age: 71 Year
  Sex: Female
  Weight: 60 kg

DRUGS (3)
  1. PRALATREXATE (PRALATREXATE) [Suspect]
     Indication: BREAST CANCER
     Dosage: 300 MG;QOM;IV
     Route: 042
     Dates: start: 20100526, end: 20100609
  2. CON MEDS [Concomitant]
  3. PREV MEDS [Concomitant]

REACTIONS (20)
  - ANAEMIA [None]
  - ASPIRATION [None]
  - ASTHENIA [None]
  - BLOOD BILIRUBIN INCREASED [None]
  - BLOOD UREA INCREASED [None]
  - C-REACTIVE PROTEIN INCREASED [None]
  - CHOLECYSTITIS [None]
  - FEBRILE BONE MARROW APLASIA [None]
  - GALLBLADDER DISORDER [None]
  - GASTRIC ULCER [None]
  - GENERAL PHYSICAL HEALTH DETERIORATION [None]
  - GINGIVAL BLEEDING [None]
  - HYPOPHAGIA [None]
  - MUCOSAL INFLAMMATION [None]
  - NEUTROPENIA [None]
  - OESOPHAGEAL CANDIDIASIS [None]
  - SCAR [None]
  - THROMBOCYTOPENIA [None]
  - VULVAR EROSION [None]
  - WEIGHT DECREASED [None]
